FAERS Safety Report 8521459-4 (Version None)
Quarter: 2012Q3

REPORT INFORMATION
  Report Type: 
  Country: None (occurrence: None)
  Receive Date: 20120719
  Receipt Date: 20120713
  Transmission Date: 20120928
  Serious: Yes (Congenital Anomaly)
  Sender: FDA-Public Use
  Company Number: DE-TEVA-348448GER

PATIENT
  Age: 0 Year
  Sex: Male

DRUGS (2)
  1. RISPERIDONE [Suspect]
     Route: 064
     Dates: start: 20110621, end: 20120402
  2. FOLIO [Concomitant]
     Route: 064

REACTIONS (1)
  - HAEMANGIOMA CONGENITAL [None]
